FAERS Safety Report 23459275 (Version 1)
Quarter: 2024Q1

REPORT INFORMATION
  Report Type: Spontaneous
  Country: AU (occurrence: AU)
  Receive Date: 20240131
  Receipt Date: 20240131
  Transmission Date: 20240410
  Serious: Yes (Hospitalization, Other)
  Sender: FDA-Public Use
  Company Number: AU-CIPLA LTD.-2024AU00947

PATIENT

DRUGS (3)
  1. LENALIDOMIDE [Suspect]
     Active Substance: LENALIDOMIDE
     Indication: Follicular lymphoma
     Dosage: 20 MILLIGRAM, INTERVAL 1 DAY
     Route: 048
     Dates: start: 20221123, end: 20230725
  2. TAFASITAMAB [Suspect]
     Active Substance: TAFASITAMAB
     Indication: Follicular lymphoma
     Dosage: UNK
     Route: 042
     Dates: start: 20221122, end: 20230719
  3. RITUXIMAB [Suspect]
     Active Substance: RITUXIMAB
     Indication: Follicular lymphoma
     Dosage: 375 MILLIGRAM/SQ. METER
     Route: 042
     Dates: start: 20221124, end: 20230315

REACTIONS (3)
  - COVID-19 [Recovered/Resolved]
  - Anaemia [Recovered/Resolved]
  - Platelet count decreased [Not Recovered/Not Resolved]

NARRATIVE: CASE EVENT DATE: 20230725
